FAERS Safety Report 5245355-3 (Version None)
Quarter: 2007Q1

REPORT INFORMATION
  Report Type: 
  Country: None (occurrence: None)
  Receive Date: 20070223
  Receipt Date: 20070219
  Transmission Date: 20070707
  Serious: Yes (Life-Threatening, Other)
  Sender: FDA-Public Use
  Company Number: PHFR2007GB00854

PATIENT
  Age: 83 Year
  Sex: Female
  Weight: 44.45 kg

DRUGS (4)
  1. RIVASTIGMINE [Suspect]
     Indication: DEMENTIA
     Dosage: UNK, UNK
     Route: 048
     Dates: start: 20060101, end: 20061204
  2. ACETYLSALICYLIC ACID SRT [Concomitant]
     Route: 065
  3. LANSOPRAZOLE [Concomitant]
     Route: 065
  4. METOPROLOL SUCCINATE [Concomitant]
     Route: 065

REACTIONS (4)
  - DECREASED APPETITE [None]
  - FALL [None]
  - MOBILITY DECREASED [None]
  - SYNCOPE [None]
